FAERS Safety Report 4867756-5 (Version None)
Quarter: 2005Q4

REPORT INFORMATION
  Report Type: 
  Country: None (occurrence: None)
  Receive Date: 20051222
  Receipt Date: 20051222
  Transmission Date: 20060501
  Serious: Yes (Other)
  Sender: FDA-Public Use
  Company Number: None

PATIENT
  Age: 29 Year
  Sex: Female

DRUGS (1)
  1. PRIMACARE PRENATAL VITAMINS (THER-RX CORPORATION) [Suspect]
     Indication: PREGNANCY
     Dosage: 1 TABLET + 1 CAPSULE DAILY
     Dates: start: 20051030, end: 20051103

REACTIONS (4)
  - ABDOMINAL PAIN [None]
  - ABORTION SPONTANEOUS [None]
  - DRUG EXPOSURE DURING PREGNANCY [None]
  - METRORRHAGIA [None]
